FAERS Safety Report 6143832-4 (Version None)
Quarter: 2009Q2

REPORT INFORMATION
  Report Type: 
  Country: None (occurrence: None)
  Receive Date: 20090403
  Receipt Date: 20090326
  Transmission Date: 20091009
  Serious: Yes (Congenital Anomaly)
  Sender: FDA-Public Use
  Company Number: US-GILEAD-2009-0021208

PATIENT
  Sex: Male
  Weight: 2.547 kg

DRUGS (2)
  1. TRUVADA [Suspect]
     Route: 064
  2. LOPINAVIR AND RITONAVIR [Concomitant]

REACTIONS (1)
  - DIGEORGE'S SYNDROME [None]
